FAERS Safety Report 6635345-8 (Version None)
Quarter: 2010Q1

REPORT INFORMATION
  Report Type: 
  Country: None (occurrence: None)
  Receive Date: 20100315
  Receipt Date: 20100302
  Transmission Date: 20100710
  Serious: Yes (Hospitalization, Other)
  Sender: FDA-Public Use
  Company Number: GB-ELI_LILLY_AND_COMPANY-GB201001006209

PATIENT
  Sex: Male
  Weight: 81 kg

DRUGS (9)
  1. GEMCITABINE HCL [Suspect]
     Indication: PANCREATIC CARCINOMA
     Dosage: 2000 MG, OTHER (2000MG X 2)
     Route: 042
     Dates: start: 20090520
  2. GEMCITABINE HCL [Suspect]
     Dosage: 1800 MG, OTHER (1800MG X 15)
     Route: 042
  3. GEMCITABINE HCL [Suspect]
     Dosage: 1600 MG, OTHER (1600MG X 3)
     Route: 042
     Dates: end: 20100115
  4. CREON [Concomitant]
     Indication: HYPOALBUMINAEMIA
     Dosage: 10000 D/F, OTHER
     Route: 048
     Dates: start: 20100121
  5. FUROSEMIDE [Concomitant]
     Indication: OEDEMA
     Dosage: 40 MG, DAILY (1/D)
     Route: 048
     Dates: start: 20100120
  6. MEROPENEM [Concomitant]
     Indication: PYREXIA
     Dosage: 500 MG, 2/D
     Route: 042
     Dates: start: 20100120, end: 20100204
  7. OMEPRAZOLE [Concomitant]
     Indication: DYSPEPSIA
     Dosage: 20 MG, DAILY (1/D)
     Route: 048
     Dates: start: 20100120, end: 20100123
  8. LEVOTHYROXINE SODIUM [Concomitant]
     Indication: HYPOTHYROIDISM
     Dosage: 150 MG, DAILY (1/D)
     Route: 048
     Dates: start: 20090323
  9. PREDNISOLONE [Concomitant]
     Indication: NEPHROTIC SYNDROME
     Dosage: 30 MG, DAILY (1/D)
     Route: 048
     Dates: start: 20100123, end: 20100129

REACTIONS (5)
  - ANAEMIA [None]
  - GLOMERULONEPHRITIS [None]
  - HAEMOLYTIC URAEMIC SYNDROME [None]
  - RENAL FAILURE ACUTE [None]
  - THROMBOTIC MICROANGIOPATHY [None]
